FAERS Safety Report 24326251 (Version 1)
Quarter: 2024Q3

REPORT INFORMATION
  Report Type: Spontaneous
  Country: HR (occurrence: HR)
  Receive Date: 20240917
  Receipt Date: 20240917
  Transmission Date: 20241016
  Serious: Yes (Other)
  Sender: CHEPLAPHARM
  Company Number: None

PATIENT
  Age: 16 Year
  Sex: Female

DRUGS (4)
  1. OLANZAPINE [Suspect]
     Active Substance: OLANZAPINE
     Dosage: MAYBE OLANZAPINE
     Route: 048
     Dates: start: 20240702, end: 20240702
  2. NORMABEL [Suspect]
     Active Substance: DIAZEPAM
     Dosage: 10 TBL NORMABEL OF 10 MG?DAILY DOSE: 100 MILLIGRAM
     Route: 048
     Dates: start: 20240702, end: 20240702
  3. ALPRAZOLAM [Suspect]
     Active Substance: ALPRAZOLAM
     Dosage: DAILY DOSE: 10 MILLIGRAM
     Route: 048
     Dates: start: 20240702, end: 20240702
  4. ESCITALOPRAM OXALATE [Suspect]
     Active Substance: ESCITALOPRAM OXALATE
     Dosage: 30 TBL OF 2MG
     Route: 048
     Dates: start: 20240702, end: 20240702

REACTIONS (2)
  - Suicide attempt [Unknown]
  - Intentional overdose [Unknown]

NARRATIVE: CASE EVENT DATE: 20240702
